FAERS Safety Report 24358794 (Version 1)
Quarter: 2024Q3

REPORT INFORMATION
  Report Type: Spontaneous
  Country: US (occurrence: US)
  Receive Date: 20240924
  Receipt Date: 20240924
  Transmission Date: 20241016
  Serious: Yes (Death, Hospitalization)
  Sender: AMGEN
  Company Number: US-AMGEN-USASP2024188375

PATIENT
  Age: 61 Year
  Sex: Male

DRUGS (2)
  1. BEVACIZUMAB [Suspect]
     Active Substance: BEVACIZUMAB
     Indication: Colorectal cancer metastatic
     Dosage: UNK
     Route: 065
  2. FLUOROURACIL\IRINOTECAN\LEUCOVORIN [Concomitant]
     Active Substance: FLUOROURACIL\IRINOTECAN\LEUCOVORIN
     Indication: Colorectal cancer metastatic
     Route: 065

REACTIONS (5)
  - Colorectal cancer metastatic [Fatal]
  - Hepatic failure [Fatal]
  - Liver abscess [Unknown]
  - Streptococcus test positive [Recovered/Resolved]
  - Fistula [Unknown]
